FAERS Safety Report 7331168-5 (Version None)
Quarter: 2011Q1

REPORT INFORMATION
  Report Type: 
  Country: None (occurrence: None)
  Receive Date: 20110304
  Receipt Date: 20110301
  Transmission Date: 20110831
  Serious: Yes (Hospitalization)
  Sender: FDA-Public Use
  Company Number: ES-BRISTOL-MYERS SQUIBB COMPANY-15575749

PATIENT
  Age: 81 Year
  Sex: Female

DRUGS (5)
  1. OMEPRAZOLE [Concomitant]
     Indication: PROPHYLAXIS AGAINST GASTROINTESTINAL ULCER
     Route: 048
     Dates: start: 20080101, end: 20101108
  2. METFORMIN HCL [Suspect]
     Indication: TYPE 2 DIABETES MELLITUS
     Dosage: DIANBEN FILM COATED TABS.850 COMPRIMIDOS RECUBIERTOS CON PELICULA, 50COMPRIMIDOS
     Route: 048
     Dates: start: 20000101, end: 20101108
  3. PRAVASTATIN SODIUM [Concomitant]
     Indication: DYSLIPIDAEMIA
     Route: 048
     Dates: start: 20030101, end: 20101108
  4. ENALAPRIL [Concomitant]
     Indication: HYPERTENSION
     Route: 048
     Dates: start: 20000101, end: 20101108
  5. SINTROM [Concomitant]
     Indication: ATRIAL FLUTTER
     Dosage: 1 DF= 20COMPRIMIDOS SINTROM TABS
     Route: 048
     Dates: start: 20101105, end: 20101108

REACTIONS (2)
  - RENAL FAILURE ACUTE [None]
  - LACTIC ACIDOSIS [None]
